FAERS Safety Report 17795519 (Version 2)
Quarter: 2020Q2

REPORT INFORMATION
  Report Type: Spontaneous
  Country: US (occurrence: US)
  Receive Date: 20200515
  Receipt Date: 20200626
  Transmission Date: 20200714
  Serious: Yes (Hospitalization)
  Sender: FDA-Public Use
  Company Number: US-B.I. PHARMACEUTICALS,INC./RIDGEFIELD-2020-BI-024593

PATIENT
  Age: 69 Year
  Sex: Male
  Weight: 90.71 kg

DRUGS (19)
  1. METOPROLOL TARTRATE. [Concomitant]
     Active Substance: METOPROLOL TARTRATE
     Indication: HYPERTENSION
  2. NITROSTAT [Concomitant]
     Active Substance: NITROGLYCERIN
     Indication: CHEST PAIN
     Dosage: UNDER THE TONGUE EVERY FIVE MINUTES AS NEEDED FOR 3 DOSES AS DIRECTED FOR CHEST PAIN OR AS DIRECTED
     Route: 060
  3. PSYLLIUM [PLANTAGO OVATA] [Concomitant]
     Active Substance: HERBALS\PLANTAGO OVATA LEAF
     Indication: PRODUCT USED FOR UNKNOWN INDICATION
     Dosage: SF ORAL PWD ONE ROUNDED TEASPOONFUL BY MOUTH DAILY
     Route: 048
  4. METFORMIN HCL [Concomitant]
     Active Substance: METFORMIN HYDROCHLORIDE
     Indication: PRODUCT USED FOR UNKNOWN INDICATION
     Dosage: TAKE IN THE MORNING AND AT BEDTIME
     Route: 048
  5. SIMETHICONE (DIMETHICONE) [Concomitant]
     Active Substance: DIMETHICONE
     Indication: FLATULENCE
     Dosage: CHEW TWO TABLET BY MOUTH TWICE DAILY AS NEEDED FOR GAS
     Route: 048
  6. KETOCONAZOLE. [Concomitant]
     Active Substance: KETOCONAZOLE
     Indication: LOCALISED INFECTION
     Dosage: 2% SHAMPOO, SMALL AMOUNT TOPICALLY EVERY OTHER DAY FOR SCALP INFECTION, LET SIT FOR 5 MIN THEN RINSE
     Route: 061
  7. PRADAXA [Suspect]
     Active Substance: DABIGATRAN ETEXILATE MESYLATE
     Indication: ATRIAL FIBRILLATION
     Dosage: 150 MG ORAL CAPSULE, TAKE ONE CAPSULE BY MOUTH TWICE A DAY.
     Route: 048
     Dates: start: 20120622, end: 20170721
  8. ASA [Concomitant]
     Active Substance: ASPIRIN
     Indication: PRODUCT USED FOR UNKNOWN INDICATION
     Route: 065
  9. FISH OIL [Concomitant]
     Active Substance: FISH OIL
     Indication: PRODUCT USED FOR UNKNOWN INDICATION
     Dosage: 1000 MG (500 MG DHA/EPA), 1000 MG BY MOUTH DAILY
     Route: 048
  10. METOPROLOL TARTRATE. [Concomitant]
     Active Substance: METOPROLOL TARTRATE
     Indication: CARDIAC DISORDER
     Dosage: TAKE IN THE MORNING AND AT BEDTIME
     Route: 048
  11. METRONIDAZOLE. [Concomitant]
     Active Substance: METRONIDAZOLE
     Indication: INFECTION
     Dosage: 0.75%; APPLY THIN FILM TOPICALLY TO THE FACE AS DIRECTED
     Route: 061
  12. LISINOPRIL. [Concomitant]
     Active Substance: LISINOPRIL
     Indication: BLOOD PRESSURE MANAGEMENT
     Dosage: IN THE MORNING
     Route: 048
  13. ATORVASTATIN CALCIUM. [Concomitant]
     Active Substance: ATORVASTATIN CALCIUM
     Indication: PRODUCT USED FOR UNKNOWN INDICATION
     Dosage: TAKE ONE TABLET BY MOUTH DAILY (TAKE IN THE MORNING)
     Route: 048
  14. CARBOXYMETHYLCELLULOSE SODIUM. [Concomitant]
     Active Substance: CARBOXYMETHYLCELLULOSE SODIUM
     Indication: DRY EYE
     Dosage: 0.5% OPH SOLN, INSTILL 1 DROP IN BOTH EYES FOUR TIMES A DAY FOR DRY EYES
     Route: 065
  15. DIPHENHYDRAMINE HCL [Concomitant]
     Active Substance: DIPHENHYDRAMINE HYDROCHLORIDE
     Indication: PRODUCT USED FOR UNKNOWN INDICATION
     Dosage: TAKE ONE CAPSULE BY MOUTH AT BEDTIME AS NEEDED
     Route: 048
  16. TRIAMCINOLONE ACETONIDE. [Concomitant]
     Active Substance: TRIAMCINOLONE ACETONIDE
     Indication: RASH
     Dosage: 0.1% OINT APPLY SMALL AMOUNT TOPICALLY AT BEDTIME.
     Route: 061
  17. FENOFIBRATE. [Concomitant]
     Active Substance: FENOFIBRATE
     Indication: PRODUCT USED FOR UNKNOWN INDICATION
     Dosage: TAKE ONE TABLET BY MOUTH DAILY IN THE MORNING
     Route: 048
  18. FERROUS SULFATE. [Concomitant]
     Active Substance: FERROUS SULFATE
     Indication: MINERAL SUPPLEMENTATION
     Dosage: EC TAB, TAKE ONE TABLET BY MOUTH THREE TIMES DAILY (MORNING/NOON/BEDTIME), TAKE WITH FOOD
     Route: 048
  19. ALGAL 900 DHA [Concomitant]
     Indication: PRODUCT USED FOR UNKNOWN INDICATION
     Route: 065

REACTIONS (2)
  - Upper gastrointestinal haemorrhage [Recovered/Resolved]
  - Anaemia [Recovered/Resolved]

NARRATIVE: CASE EVENT DATE: 20170702
